FAERS Safety Report 23332506 (Version 1)
Quarter: 2023Q4

REPORT INFORMATION
  Report Type: Spontaneous
  Country: FR (occurrence: None)
  Receive Date: 20231222
  Receipt Date: 20231222
  Transmission Date: 20240109
  Serious: Yes (Other)
  Sender: FDA-Public Use
  Company Number: 2023A267795

PATIENT
  Age: 60 Year
  Sex: Female

DRUGS (15)
  1. OLAPARIB [Interacting]
     Active Substance: OLAPARIB
     Indication: Metastases to lung
     Route: 048
  2. OLAPARIB [Interacting]
     Active Substance: OLAPARIB
     Indication: Osteosarcoma
     Route: 048
  3. OLAPARIB [Interacting]
     Active Substance: OLAPARIB
     Indication: Metastases to lung
     Route: 048
  4. OLAPARIB [Interacting]
     Active Substance: OLAPARIB
     Indication: Osteosarcoma
     Route: 048
  5. APIXABAN [Interacting]
     Active Substance: APIXABAN
     Indication: Thrombosis prophylaxis
  6. AMLODIPINE [Concomitant]
     Active Substance: AMLODIPINE BESYLATE
     Indication: Product used for unknown indication
  7. ALPRAZOLAM [Concomitant]
     Active Substance: ALPRAZOLAM
     Indication: Product used for unknown indication
  8. OMEPRAZOLE [Concomitant]
     Active Substance: OMEPRAZOLE
     Indication: Product used for unknown indication
  9. RAMIPRIL [Concomitant]
     Active Substance: RAMIPRIL
     Indication: Product used for unknown indication
  10. MORPHINE [Concomitant]
     Active Substance: MORPHINE
     Indication: Product used for unknown indication
  11. ACETAMINOPHEN [Concomitant]
     Active Substance: ACETAMINOPHEN
     Indication: Product used for unknown indication
     Dosage: IF NECESSARY
  12. LEVOTHYROXINE [Concomitant]
     Active Substance: LEVOTHYROXINE
     Indication: Product used for unknown indication
  13. AMITRIPTYLINE [Concomitant]
     Active Substance: AMITRIPTYLINE
     Indication: Product used for unknown indication
     Dosage: 5 DROPS PER DAY
  14. VENLAFAXINE [Concomitant]
     Active Substance: VENLAFAXINE HYDROCHLORIDE
     Indication: Product used for unknown indication
  15. NALOXEGOL [Concomitant]
     Active Substance: NALOXEGOL
     Indication: Product used for unknown indication

REACTIONS (4)
  - Drug interaction [Unknown]
  - Off label use [Unknown]
  - Anaemia [Unknown]
  - Thrombocytopenia [Unknown]
